FAERS Safety Report 18459193 (Version 2)
Quarter: 2020Q4

REPORT INFORMATION
  Report Type: Spontaneous
  Country: US (occurrence: US)
  Receive Date: 20201103
  Receipt Date: 20201203
  Transmission Date: 20210114
  Serious: No
  Sender: FDA-Public Use
  Company Number: US-BEH-2020124158

PATIENT
  Sex: Female

DRUGS (1)
  1. HIZENTRA [Suspect]
     Active Substance: HUMAN IMMUNOGLOBULIN G
     Indication: HUMORAL IMMUNE DEFECT
     Dosage: 10 GRAM, QW
     Route: 058
     Dates: start: 20200417

REACTIONS (6)
  - Injection site swelling [Unknown]
  - Pyrexia [Recovered/Resolved]
  - Death of relative [Unknown]
  - Injection site haemorrhage [Unknown]
  - Family stress [Unknown]
  - Ill-defined disorder [Recovered/Resolved]
